FAERS Safety Report 8444347-0 (Version None)
Quarter: 2012Q2

REPORT INFORMATION
  Report Type: 
  Country: None (occurrence: None)
  Receive Date: 20120618
  Receipt Date: 20120611
  Transmission Date: 20120825
  Serious: No
  Sender: FDA-Public Use
  Company Number: US-B.I. PHARMACEUTICALS,INC./RIDGEFIELD-2012-BP-13438BP

PATIENT
  Sex: Female

DRUGS (5)
  1. SPIRIVA [Suspect]
     Indication: CHRONIC OBSTRUCTIVE PULMONARY DISEASE
     Dosage: 18 MCG
     Route: 055
     Dates: start: 20090101
  2. AMLODIPINE BESYLATE [Concomitant]
     Indication: BLOOD PRESSURE
     Dosage: 3 MG
     Route: 048
     Dates: start: 20000201
  3. SYNTHROID [Concomitant]
     Indication: THYROID DISORDER
     Route: 048
     Dates: start: 20000201
  4. TRAMADOL HCL [Concomitant]
     Indication: BACK PAIN
     Dosage: 50 MG
     Route: 048
     Dates: start: 20070101
  5. ATENOLOL [Concomitant]
     Indication: BLOOD PRESSURE
     Dosage: 25 MG
     Route: 048
     Dates: start: 20000201

REACTIONS (2)
  - PARKINSON'S DISEASE [None]
  - GAIT DISTURBANCE [None]
